FAERS Safety Report 15895334 (Version 1)
Quarter: 2019Q1

REPORT INFORMATION
  Report Type: Spontaneous
  Country: US (occurrence: US)
  Receive Date: 20190131
  Receipt Date: 20190131
  Transmission Date: 20190417
  Serious: Yes (Disabling)
  Sender: FDA-Public Use
  Company Number: None

PATIENT
  Age: 62 Year
  Sex: Male
  Weight: 117 kg

DRUGS (1)
  1. DMSO (DIMETHYL SULFOXIDE) [Suspect]
     Active Substance: DIMETHYL SULFOXIDE
     Indication: LIMB INJURY
     Route: 061
     Dates: start: 19860101, end: 19890101

REACTIONS (3)
  - Cardiac failure congestive [None]
  - Pulmonary sarcoidosis [None]
  - Product use in unapproved indication [None]

NARRATIVE: CASE EVENT DATE: 19860101
